FAERS Safety Report 11192640 (Version 1)
Quarter: 2015Q2

REPORT INFORMATION
  Report Type: Spontaneous
  Country: US (occurrence: None)
  Receive Date: 20150615
  Receipt Date: 20150615
  Transmission Date: 20150821
  Serious: Yes (Hospitalization)
  Sender: FDA-Public Use
  Company Number: None

PATIENT
  Age: 29 Year
  Sex: Female
  Weight: 73.6 kg

DRUGS (4)
  1. METHADONE [Concomitant]
     Active Substance: METHADONE HYDROCHLORIDE
  2. DEPAKOTE [Concomitant]
     Active Substance: DIVALPROEX SODIUM
  3. TEMOZOLOMIDE. [Concomitant]
     Active Substance: TEMOZOLOMIDE
  4. NUVIGIL [Suspect]
     Active Substance: ARMODAFINIL
     Dosage: 12 UNIT
     Dates: end: 20150603

REACTIONS (4)
  - Status epilepticus [None]
  - Platelet count decreased [None]
  - Transaminases increased [None]
  - Hydrocephalus [None]

NARRATIVE: CASE EVENT DATE: 20150604
